FAERS Safety Report 6741287-X (Version None)
Quarter: 2010Q2

REPORT INFORMATION
  Report Type: 
  Country: None (occurrence: None)
  Receive Date: 20100526
  Receipt Date: 20100505
  Transmission Date: 20101027
  Serious: Yes (Hospitalization)
  Sender: FDA-Public Use
  Company Number: NO-ASTRAZENECA-2010SE23588

PATIENT
  Age: 75 Year
  Sex: Female

DRUGS (10)
  1. PROPOFOL [Suspect]
  2. SOBRIL [Concomitant]
  3. EDRONAX [Concomitant]
  4. CURACIT [Concomitant]
  5. NORTRIPTYLINE HCL [Concomitant]
  6. SINEMET [Concomitant]
     Dosage: 25/100
  7. SINEMET [Concomitant]
     Dosage: 12.5/50
  8. FLUTIDE [Concomitant]
  9. ATROPIN [Concomitant]
  10. APODORM [Concomitant]

REACTIONS (1)
  - PULMONARY EMBOLISM [None]
